FAERS Safety Report 7972529-0 (Version None)
Quarter: 2011Q4

REPORT INFORMATION
  Report Type: 
  Country: None (occurrence: None)
  Receive Date: 20111209
  Receipt Date: 20111201
  Transmission Date: 20120403
  Serious: Yes (Death)
  Sender: FDA-Public Use
  Company Number: ALK_02161_2011

PATIENT
  Sex: Male

DRUGS (1)
  1. VIVITROL [Suspect]
     Indication: ALCOHOLISM
     Dosage: (380 MG 1X/4 WEEKS INTRAMUSCULAR)
     Route: 030
     Dates: start: 20081007, end: 20111101

REACTIONS (1)
  - DEATH [None]
